FAERS Safety Report 23891161 (Version 1)
Quarter: 2024Q2

REPORT INFORMATION
  Report Type: Spontaneous
  Country: CN (occurrence: CN)
  Receive Date: 20240523
  Receipt Date: 20240523
  Transmission Date: 20240716
  Serious: Yes (Hospitalization)
  Sender: FDA-Public Use
  Company Number: CN-Merck Healthcare KGaA-2024026283

PATIENT
  Age: 47 Year
  Sex: Female
  Weight: 59 kg

DRUGS (5)
  1. ERBITUX [Suspect]
     Active Substance: CETUXIMAB
     Indication: Rectal cancer
     Dosage: 800 MG, UNKNOWN
     Route: 041
     Dates: start: 20240422
  2. IRINOTECAN HYDROCHLORIDE [Suspect]
     Active Substance: IRINOTECAN HYDROCHLORIDE
     Indication: Rectal cancer
     Dosage: 320 MG, DAILY
     Route: 042
     Dates: start: 20240422, end: 20240422
  3. FLUOROURACIL [Suspect]
     Active Substance: FLUOROURACIL
     Indication: Rectal cancer
     Dosage: 0.5 G, DAILY
     Route: 065
     Dates: start: 20240422, end: 20240422
  4. FLUOROURACIL [Suspect]
     Active Substance: FLUOROURACIL
     Dosage: 4 G, OTHER (EVEY 2 DAYS)
     Route: 042
     Dates: start: 20240422, end: 20240423
  5. LEUCOVORIN SODIUM [Suspect]
     Active Substance: LEUCOVORIN SODIUM
     Indication: Rectal cancer
     Dosage: 300 MG, DAILY
     Route: 041
     Dates: start: 20240422, end: 20240422

REACTIONS (1)
  - Myelosuppression [Recovering/Resolving]

NARRATIVE: CASE EVENT DATE: 20240506
